FAERS Safety Report 5107241-9 (Version None)
Quarter: 2006Q3

REPORT INFORMATION
  Report Type: 
  Country: None (occurrence: None)
  Receive Date: 20060913
  Receipt Date: 20060906
  Transmission Date: 20061208
  Serious: Yes (Other)
  Sender: FDA-Public Use
  Company Number: US-2006-026243

PATIENT
  Age: 54 Year
  Sex: Female
  Weight: 56.7 kg

DRUGS (1)
  1. CLIMARA PRO [Suspect]
     Indication: MENOPAUSAL SYMPTOMS
     Dosage: 0.045/0.015 MG/D, CONT, TRANSDERMAL
     Route: 062
     Dates: start: 20050901, end: 20060907

REACTIONS (1)
  - DEAFNESS UNILATERAL [None]
